FAERS Safety Report 25163684 (Version 1)
Quarter: 2025Q2

REPORT INFORMATION
  Report Type: Spontaneous
  Country: US (occurrence: US)
  Receive Date: 20250405
  Receipt Date: 20250405
  Transmission Date: 20250717
  Serious: Yes (Life-Threatening)
  Sender: ACCORD
  Company Number: US-MLMSERVICE-20250319-PI450172-00152-1

PATIENT
  Age: 70 Year
  Sex: Female

DRUGS (1)
  1. FLUOROURACIL [Suspect]
     Active Substance: FLUOROURACIL
     Indication: Rectal cancer stage II

REACTIONS (1)
  - Arteriospasm coronary [Recovering/Resolving]
